FAERS Safety Report 10171405 (Version 1)
Quarter: 2014Q2

REPORT INFORMATION
  Report Type: Report from Study
  Country: JP (occurrence: JP)
  Receive Date: 20140514
  Receipt Date: 20140514
  Transmission Date: 20141212
  Serious: Yes (Life-Threatening)
  Sender: FDA-Public Use
  Company Number: JP-SA-2014SA061058

PATIENT
  Age: 74 Year
  Sex: Female
  Weight: 65 kg

DRUGS (8)
  1. THYMOGLOBULINE [Suspect]
     Indication: APLASTIC ANAEMIA
     Route: 042
     Dates: start: 20121001, end: 20121005
  2. NEORAL [Concomitant]
     Indication: APLASTIC ANAEMIA
     Dates: start: 20121001
  3. LANSOPRAZOLE [Concomitant]
     Indication: PROPHYLAXIS
     Dates: start: 20121001, end: 20130908
  4. MAGMITT [Concomitant]
     Indication: CONSTIPATION PROPHYLAXIS
     Dates: start: 20121001
  5. DAIPHEN [Concomitant]
     Indication: ANTIFUNGAL PROPHYLAXIS
     Dates: start: 20121026
  6. ZOVIRAX [Concomitant]
     Indication: ANTIVIRAL PROPHYLAXIS
     Dates: start: 20121109
  7. NORVASC [Concomitant]
     Indication: HYPERTENSION
  8. SOL-MELCORT [Concomitant]
     Indication: ALLERGY PROPHYLAXIS
     Dates: start: 20121001, end: 20121005

REACTIONS (2)
  - Bacteraemia [Recovered/Resolved]
  - Febrile neutropenia [Recovered/Resolved]
